FAERS Safety Report 8516566-6 (Version None)
Quarter: 2012Q3

REPORT INFORMATION
  Report Type: 
  Country: None (occurrence: None)
  Receive Date: 20120718
  Receipt Date: 20120712
  Transmission Date: 20120928
  Serious: Yes (Death, Hospitalization)
  Sender: FDA-Public Use
  Company Number: US-ELI_LILLY_AND_COMPANY-US201207004452

PATIENT
  Sex: Female

DRUGS (2)
  1. ADCIRCA [Suspect]
  2. TYVASO [Concomitant]
     Indication: PULMONARY ARTERIAL HYPERTENSION

REACTIONS (3)
  - RESPIRATORY DISORDER [None]
  - DEATH [None]
  - OFF LABEL USE [None]
